FAERS Safety Report 8831742 (Version 2)
Quarter: 2012Q4

REPORT INFORMATION
  Report Type: Report from Study
  Country: JP (occurrence: JP)
  Receive Date: 20121009
  Receipt Date: 20121226
  Transmission Date: 20130627
  Serious: Yes (Other)
  Sender: FDA-Public Use
  Company Number: JP-VERTEX PHARMACEUTICAL INC.-2012-022460

PATIENT
  Age: 62 Year
  Sex: Male

DRUGS (11)
  1. VX-950 (TELAPREVIR) [Suspect]
     Indication: CHRONIC HEPATITIS C
     Dosage: 2250 mg, qd
     Route: 048
     Dates: start: 20120625, end: 20120812
  2. VX-950 (TELAPREVIR) [Suspect]
     Dosage: 1750 mg, qd
     Route: 048
     Dates: start: 20120813, end: 20120819
  3. VX-950 (TELAPREVIR) [Suspect]
     Dosage: 1500 mg, qd
     Route: 048
     Dates: start: 20120820, end: 20120826
  4. VX-950 (TELAPREVIR) [Suspect]
     Dosage: 1000 mg, qd
     Route: 048
     Dates: start: 20120827, end: 20120902
  5. VX-950 (TELAPREVIR) [Suspect]
     Dosage: 500 mg, qd
     Route: 048
     Dates: start: 20120903, end: 20120909
  6. RIBAVIRIN [Suspect]
     Indication: CHRONIC HEPATITIS C
     Dosage: 600 mg, qd
     Route: 048
     Dates: start: 20120625, end: 20120806
  7. RIBAVIRIN [Suspect]
     Dosage: 400 mg, qd
     Route: 048
     Dates: start: 20120807, end: 20120902
  8. RIBAVIRIN [Suspect]
     Dosage: 200 mg, qd
     Route: 048
     Dates: start: 20120903, end: 20120909
  9. PEGINTERFERON ALFA-2B [Suspect]
     Indication: CHRONIC HEPATITIS C
     Dosage: 1.5 ?g/kg, UNK
     Route: 058
     Dates: start: 20120625, end: 20120820
  10. PEGINTERFERON ALFA-2B [Suspect]
     Dosage: 80 ?g, UNK
     Route: 058
     Dates: start: 20120827, end: 20120827
  11. PEGINTERFERON ALFA-2B [Suspect]
     Dosage: 60 ?g, UNK
     Route: 058
     Dates: start: 20120903, end: 20120903

REACTIONS (4)
  - Decreased appetite [Not Recovered/Not Resolved]
  - Decreased appetite [Recovered/Resolved]
  - Anaemia [Not Recovered/Not Resolved]
  - Anaemia [Recovered/Resolved]
